FAERS Safety Report 21810005 (Version 2)
Quarter: 2023Q1

REPORT INFORMATION
  Report Type: Spontaneous
  Country: US (occurrence: US)
  Receive Date: 20230103
  Receipt Date: 20230103
  Transmission Date: 20230417
  Serious: Yes (Hospitalization)
  Sender: FDA-Public Use
  Company Number: US-NAARI PTE LIMITED-2022NP000052

PATIENT
  Age: 50 Year
  Sex: Female

DRUGS (3)
  1. NORETHINDRONE [Suspect]
     Active Substance: NORETHINDRONE
     Indication: Abnormal uterine bleeding
     Dosage: UNK
     Route: 065
     Dates: start: 2018
  2. CONJUGATED ESTROGENS [Suspect]
     Active Substance: ESTROGENS, CONJUGATED
     Indication: Vaginal haemorrhage
     Dosage: UNK
     Route: 042
     Dates: start: 2018, end: 2018
  3. MEGESTROL ACETATE [Suspect]
     Active Substance: MEGESTROL ACETATE
     Indication: Vaginal haemorrhage
     Dosage: UNK
     Route: 065
     Dates: start: 2018

REACTIONS (1)
  - Drug ineffective for unapproved indication [Unknown]

NARRATIVE: CASE EVENT DATE: 20180101
